FAERS Safety Report 13005380 (Version 1)
Quarter: 2016Q4

REPORT INFORMATION
  Report Type: Spontaneous
  Country: US (occurrence: US)
  Receive Date: 20161207
  Receipt Date: 20161207
  Transmission Date: 20170207
  Serious: No
  Sender: FDA-Public Use
  Company Number: US-BAYER-2016-230363

PATIENT
  Age: 54 Year
  Sex: Male

DRUGS (1)
  1. BETASERON [Suspect]
     Active Substance: INTERFERON BETA-1B
     Indication: PRODUCT USED FOR UNKNOWN INDICATION
     Dosage: DAILY DOSE .3 MG
     Route: 058
     Dates: start: 20160416

REACTIONS (4)
  - Hypersomnia [None]
  - Fatigue [None]
  - Unevaluable event [None]
  - Chills [None]
